FAERS Safety Report 8000554-2 (Version None)
Quarter: 2011Q4

REPORT INFORMATION
  Report Type: 
  Country: None (occurrence: None)
  Receive Date: 20111222
  Receipt Date: 20111216
  Transmission Date: 20120403
  Serious: Yes (Hospitalization, Other)
  Sender: FDA-Public Use
  Company Number: US-COVIDIEN/TYCO HEALTHCARE/MALLINCKRODT-T201102931

PATIENT
  Age: 37 Year
  Sex: Female

DRUGS (5)
  1. AMLODIPINE [Suspect]
     Dosage: UNK
  2. LOXAPINE [Suspect]
  3. WARFARIN SODIUM [Suspect]
  4. TRAMADOL HCL [Suspect]
     Dosage: UNK
  5. CARBAMAZEPINE [Suspect]

REACTIONS (2)
  - CARDIOGENIC SHOCK [None]
  - NECROSIS [None]
